FAERS Safety Report 8246182-5 (Version None)
Quarter: 2012Q1

REPORT INFORMATION
  Report Type: 
  Country: None (occurrence: None)
  Receive Date: 20120330
  Receipt Date: 20120329
  Transmission Date: 20120608
  Serious: Yes (Other)
  Sender: FDA-Public Use
  Company Number: PHHY2011CY53540

PATIENT
  Sex: Male

DRUGS (1)
  1. ZOMETA [Suspect]
     Indication: PROPHYLAXIS
     Dosage: 4 MG/5ML, QMO
     Dates: start: 20110429, end: 20110505

REACTIONS (3)
  - EXPOSED BONE IN JAW [None]
  - OSTEOMYELITIS [None]
  - OSTEONECROSIS OF JAW [None]
